FAERS Safety Report 5345481-4 (Version None)
Quarter: 2007Q2

REPORT INFORMATION
  Report Type: 
  Country: None (occurrence: None)
  Receive Date: 20070605
  Receipt Date: 20070525
  Transmission Date: 20071010
  Serious: Yes (Other)
  Sender: FDA-Public Use
  Company Number: US-ELI_LILLY_AND_COMPANY-US200704006599

PATIENT
  Age: 71 Year
  Sex: Female
  Weight: 81.179 kg

DRUGS (20)
  1. FORTEO [Suspect]
     Indication: OSTEOPOROSIS
     Dates: start: 20060401
  2. HYDROCODONE BITARTRATE [Concomitant]
     Indication: OSTEOARTHRITIS
     Dosage: 1 UNK, AS NEEDED
  3. NORTRIPTYLINE /00006501/ [Concomitant]
     Dosage: 25 MG, 4/D
  4. ALLEGRA [Concomitant]
     Dosage: 1 UNK, EACH MORNING
  5. ENABLEX                            /01760402/ [Concomitant]
     Dosage: 7.5 MG, DAILY (1/D)
  6. ESTRADIOL [Concomitant]
     Dosage: 0.5 MG, DAILY (1/D)
  7. NEXIUM [Concomitant]
     Dosage: 40 MG, DAILY (1/D)
  8. NYSTATIN [Concomitant]
     Dosage: 1 UNK, UNK
  9. GLYCOLAX [Concomitant]
  10. CRESTOR [Concomitant]
     Indication: BLOOD CHOLESTEROL
     Dosage: 10 MG, EACH EVENING
  11. PREVACID [Concomitant]
     Dosage: 30 MG, EACH MORNING
  12. DIFLUCAN [Concomitant]
     Dosage: 150 MG, DAILY (1/D)
  13. CARISOPRODOL [Concomitant]
     Dosage: 350 MG, 3/D
  14. ZANTAC [Concomitant]
     Dosage: 300 UNK, DAILY (1/D)
  15. ZELNORM [Concomitant]
     Dosage: 6 MG, 2/D
     Dates: end: 20070414
  16. DETROL [Concomitant]
     Dosage: 4 MG, EACH EVENING
  17. CLIMARA [Concomitant]
     Dosage: 0.1 MG, UNK
  18. LORAZEPAM [Concomitant]
     Dosage: 1 MG, 3/D
  19. VITAMIN B-12 [Concomitant]
     Dosage: UNK, MONTHLY (1/M)
  20. AMBIEN [Concomitant]
     Dosage: 12.5 MG, EACH EVENING

REACTIONS (22)
  - ACUTE SINUSITIS [None]
  - ALTERED STATE OF CONSCIOUSNESS [None]
  - BLADDER CANCER RECURRENT [None]
  - CHEST PAIN [None]
  - DIZZINESS [None]
  - DYSPHONIA [None]
  - ESSENTIAL HYPERTENSION [None]
  - FALL [None]
  - FATIGUE [None]
  - GASTROOESOPHAGEAL REFLUX DISEASE [None]
  - HIP FRACTURE [None]
  - HYPOGLYCAEMIA [None]
  - INTRINSIC FACTOR ANTIBODY NEGATIVE [None]
  - MALAISE [None]
  - NECK PAIN [None]
  - OSTEOARTHRITIS [None]
  - PALPITATIONS [None]
  - PATHOLOGICAL FRACTURE [None]
  - POLYP [None]
  - VENTRICULAR EXTRASYSTOLES [None]
  - VITAMIN B12 DEFICIENCY [None]
  - VITAMIN D DEFICIENCY [None]
